FAERS Safety Report 6966257-8 (Version None)
Quarter: 2010Q3

REPORT INFORMATION
  Report Type: 
  Country: None (occurrence: None)
  Receive Date: 20100903
  Receipt Date: 20100823
  Transmission Date: 20110219
  Serious: Yes (Hospitalization)
  Sender: FDA-Public Use
  Company Number: US-ELI_LILLY_AND_COMPANY-US201008008383

PATIENT
  Sex: Female

DRUGS (2)
  1. FORTEO [Suspect]
     Dosage: UNK, UNK
  2. EVISTA [Suspect]

REACTIONS (5)
  - INJECTION SITE HAEMATOMA [None]
  - MASS [None]
  - PAIN [None]
  - PHLEBITIS [None]
  - THROMBOSIS [None]
